FAERS Safety Report 7227715-4 (Version None)
Quarter: 2011Q1

REPORT INFORMATION
  Report Type: 
  Country: None (occurrence: None)
  Receive Date: 20110114
  Receipt Date: 20101118
  Transmission Date: 20110831
  Serious: Yes (Hospitalization, Other)
  Sender: FDA-Public Use
  Company Number: US-BAYER-201030247NA

PATIENT
  Sex: Female
  Weight: 86 kg

DRUGS (21)
  1. NORTRIPTYLINE [Concomitant]
  2. YASMIN [Suspect]
     Indication: CONTRACEPTION
  3. SOMA [Concomitant]
     Indication: BACK PAIN
     Dosage: 350 MG 1/2 TAB. QHS
  4. SOMA [Concomitant]
     Indication: INSOMNIA
  5. EXCEDRIN (MIGRAINE) [Concomitant]
  6. HYDROCODONE [Concomitant]
     Indication: PAIN
  7. CARISOPRODOL [Concomitant]
     Indication: MIGRAINE
  8. OCELLA [Suspect]
     Indication: PREMENSTRUAL SYNDROME
     Dates: start: 20080101
  9. TOPAMAX [Concomitant]
     Indication: MIGRAINE
  10. ZYRTEC [Concomitant]
     Indication: MULTIPLE ALLERGIES
  11. NSAID'S [Concomitant]
     Indication: BACK PAIN
  12. OCELLA [Suspect]
     Indication: ACNE
  13. OCELLA [Suspect]
     Indication: CONTRACEPTION
  14. YASMIN [Suspect]
     Indication: PREMENSTRUAL SYNDROME
     Route: 048
     Dates: start: 20030101, end: 20080615
  15. YASMIN [Suspect]
     Indication: ACNE
  16. NORTRIPTYLINE [Concomitant]
     Indication: MIGRAINE
  17. ZYRTEC [Concomitant]
     Indication: URTICARIA
  18. YAZ [Suspect]
     Indication: PREMENSTRUAL SYNDROME
     Route: 048
     Dates: start: 20040101, end: 20080615
  19. LORATADINE [Concomitant]
  20. BENTYL [Concomitant]
  21. PRILOSEC [Concomitant]

REACTIONS (4)
  - CHOLELITHIASIS [None]
  - BILE DUCT OBSTRUCTION [None]
  - CHOLECYSTITIS CHRONIC [None]
  - CHOLECYSTITIS [None]
